FAERS Safety Report 9711015 (Version 1)
Quarter: 2013Q4

REPORT INFORMATION
  Report Type: Spontaneous
  Country: US (occurrence: None)
  Receive Date: 20131125
  Receipt Date: 20131125
  Transmission Date: 20140711
  Serious: No
  Sender: FDA-Public Use
  Company Number: None

PATIENT
  Age: 55 Year
  Sex: Female
  Weight: 63.5 kg

DRUGS (1)
  1. OFLOXACIN [Suspect]
     Dosage: ONE DROP 3 TIMES DAILY THREE TIMES DAILY INTO EYE
     Dates: start: 20131117, end: 20131122

REACTIONS (3)
  - Dyspnoea [None]
  - Panic attack [None]
  - Tendon pain [None]
